FAERS Safety Report 9300357 (Version 1)
Quarter: 2013Q1

REPORT INFORMATION
  Report Type: Spontaneous
  Country: US (occurrence: None)
  Receive Date: 20130104
  Receipt Date: 20130104
  Transmission Date: 20140127
  Serious: Yes (Other)
  Sender: FDA-Public Use
  Company Number: FK201201935

PATIENT
  Age: 47 Year
  Sex: Female

DRUGS (1)
  1. PROPOFOL [Suspect]
     Indication: SEDATION
     Dosage: UNKNOWN, INTRAVENOUS  (NOT SPECIFIED)

REACTIONS (3)
  - Oxygen saturation [None]
  - Pyrexia [None]
  - Hyperhidrosis [None]
